FAERS Safety Report 10024494 (Version 5)
Quarter: 2014Q4

REPORT INFORMATION
  Report Type: Spontaneous
  Country: US (occurrence: US)
  Receive Date: 20140320
  Receipt Date: 20141007
  Transmission Date: 20150528
  Serious: Yes (Disabling, Other)
  Sender: FDA-Public Use
  Company Number: US-BAYER-2014-039447

PATIENT
  Age: 32 Year
  Sex: Female
  Weight: 65.31 kg

DRUGS (7)
  1. MINOCYCLINE [Concomitant]
     Active Substance: MINOCYCLINE\MINOCYCLINE HYDROCHLORIDE
     Dosage: 100 MG, BID
     Dates: start: 20130426
  2. CLOMIPHENE [Concomitant]
     Active Substance: CLOMIPHENE
     Dosage: UNK
     Dates: start: 2003
  3. IBUPROFEN. [Concomitant]
     Active Substance: IBUPROFEN
  4. CLOMID [Concomitant]
     Active Substance: CLOMIPHENE CITRATE
  5. MIRENA [Suspect]
     Active Substance: LEVONORGESTREL
     Indication: CONTRACEPTION
     Dosage: 20 MCG/24HR, CONT
     Route: 015
     Dates: start: 20080410, end: 20130516
  6. CLOMIPHENE CITRATE. [Concomitant]
     Active Substance: CLOMIPHENE CITRATE
     Dosage: 1 TAB DAILY DAY 3-7 OF CYCLE
     Dates: start: 20130426
  7. PROVERA [Concomitant]
     Active Substance: MEDROXYPROGESTERONE ACETATE

REACTIONS (9)
  - Pain [None]
  - Injury [None]
  - Scar [None]
  - Device dislocation [None]
  - Emotional distress [None]
  - Infertility female [None]
  - Device dislocation [None]
  - Anxiety [None]
  - Device misuse [None]

NARRATIVE: CASE EVENT DATE: 2012
